FAERS Safety Report 6434766-6 (Version None)
Quarter: 2009Q4

REPORT INFORMATION
  Report Type: 
  Country: None (occurrence: None)
  Receive Date: 20091110
  Receipt Date: 20091029
  Transmission Date: 20100525
  Serious: Yes (Other)
  Sender: FDA-Public Use
  Company Number: US-PFIZER INC-2009291302

PATIENT
  Sex: Female

DRUGS (4)
  1. ESTRING [Suspect]
     Indication: MICTURITION URGENCY
  2. ESTRING [Suspect]
     Indication: POLLAKIURIA
  3. DETROL [Suspect]
  4. VESICARE [Suspect]

REACTIONS (3)
  - INAPPROPRIATE SCHEDULE OF DRUG ADMINISTRATION [None]
  - MEMORY IMPAIRMENT [None]
  - MENORRHAGIA [None]
